FAERS Safety Report 7482555-6 (Version None)
Quarter: 2011Q2

REPORT INFORMATION
  Report Type: 
  Country: None (occurrence: None)
  Receive Date: 20110516
  Receipt Date: 20110502
  Transmission Date: 20111010
  Serious: Yes (Other)
  Sender: FDA-Public Use
  Company Number: US-BAYER-201038299NA

PATIENT
  Age: 25 Year
  Sex: Female
  Weight: 62.585 kg

DRUGS (5)
  1. YAZ [Suspect]
     Indication: CONTRACEPTION
     Dosage: UNK UNK, QD
     Route: 048
     Dates: start: 20090301, end: 20091001
  2. ORTHO EVRA [Concomitant]
     Dosage: UNK
     Dates: start: 20090101
  3. SOMA [Concomitant]
  4. TRI-SPRINTEC [Concomitant]
     Dosage: UNK
     Dates: start: 20090101
  5. ORTHO TRI-CYCLEN [Concomitant]
     Dosage: UNK
     Dates: start: 19970101, end: 20090101

REACTIONS (2)
  - CHOLECYSTITIS CHRONIC [None]
  - CHOLELITHIASIS [None]
